FAERS Safety Report 8445117-X (Version None)
Quarter: 2012Q2

REPORT INFORMATION
  Report Type: 
  Country: None (occurrence: None)
  Receive Date: 20120618
  Receipt Date: 20120614
  Transmission Date: 20120825
  Serious: Yes (Hospitalization)
  Sender: FDA-Public Use
  Company Number: US-PFIZER INC-2012144783

PATIENT
  Sex: Female
  Weight: 68.027 kg

DRUGS (3)
  1. CELEBREX [Suspect]
     Indication: SYSTEMIC LUPUS ERYTHEMATOSUS
     Dosage: 100 MG, 2X/DAY
     Route: 048
     Dates: start: 20120606, end: 20120614
  2. CELEBREX [Suspect]
     Indication: ARTHRITIS
  3. FLEXERIL [Concomitant]
     Indication: MUSCLE RELAXANT THERAPY
     Dosage: 10 MG, DAILY

REACTIONS (3)
  - DYSPEPSIA [None]
  - CHEST PAIN [None]
  - ABDOMINAL PAIN [None]
